FAERS Safety Report 10360126 (Version 1)
Quarter: 2014Q3

REPORT INFORMATION
  Report Type: Spontaneous
  Country: US (occurrence: US)
  Receive Date: 20140804
  Receipt Date: 20140804
  Transmission Date: 20150326
  Serious: Yes (Death, Other)
  Sender: FDA-Public Use
  Company Number: US-BAXTER-2014BAX042431

PATIENT
  Age: 78 Year
  Sex: Male

DRUGS (2)
  1. EXTRANEAL [Suspect]
     Active Substance: CALCIUM CHLORIDE\ICODEXTRIN\MAGNESIUM CHLORIDE\SODIUM CHLORIDE\SODIUM LACTATE
     Indication: PERITONEAL DIALYSIS
     Route: 033
     Dates: start: 20140713, end: 20140716
  2. LISINOPRIL. [Suspect]
     Active Substance: LISINOPRIL
     Indication: CHEST DISCOMFORT

REACTIONS (4)
  - Cardiac arrest [Fatal]
  - Anaphylactic reaction [Unknown]
  - Dysarthria [Unknown]
  - Pain in extremity [Unknown]

NARRATIVE: CASE EVENT DATE: 20140719
